FAERS Safety Report 16479351 (Version 8)
Quarter: 2020Q4

REPORT INFORMATION
  Report Type: Report from Study
  Country: None (occurrence: NL)
  Receive Date: 20190626
  Receipt Date: 20201007
  Transmission Date: 20210113
  Serious: Yes (Other)
  Sender: FDA-Public Use
  Company Number: NL-ABBVIE-19S-114-2747083-00

PATIENT
  Sex: Female

DRUGS (6)
  1. MOVICOLON [Concomitant]
     Active Substance: POLYETHYLENE GLYCOL 3350\POTASSIUM CHLORIDE\SODIUM BICARBONATE\SODIUM CHLORIDE
     Indication: ABNORMAL FAECES
     Dosage: 0.5 SACHET
  2. LAXANS [Concomitant]
     Indication: ABNORMAL FAECES
  3. MACROGOL [Concomitant]
     Active Substance: POLYETHYLENE GLYCOLS
     Indication: ABNORMAL FAECES
  4. DUODOPA [Suspect]
     Active Substance: CARBIDOPA\LEVODOPA
     Indication: PARKINSON^S DISEASE
     Dosage: MD: 10.0, CD: 2.6, ED: 2.0
     Route: 050
     Dates: start: 20170401
  5. DUODOPA [Suspect]
     Active Substance: CARBIDOPA\LEVODOPA
  6. MADOPAR [Concomitant]
     Active Substance: BENSERAZIDE HYDROCHLORIDE\LEVODOPA
     Indication: PARKINSON^S DISEASE
     Dosage: FOR THE NIGHT

REACTIONS (44)
  - Tension [Not Recovered/Not Resolved]
  - Middle insomnia [Not Recovered/Not Resolved]
  - Hallucination, visual [Not Recovered/Not Resolved]
  - Hypophagia [Unknown]
  - Balance disorder [Unknown]
  - Fibroma [Recovered/Resolved]
  - Feeling abnormal [Unknown]
  - Abnormal faeces [Recovered/Resolved]
  - Respiration abnormal [Not Recovered/Not Resolved]
  - Dyskinesia [Not Recovered/Not Resolved]
  - Infrequent bowel movements [Unknown]
  - Fall [Recovered/Resolved]
  - Stoma site inflammation [Recovered/Resolved]
  - Coronary artery occlusion [Not Recovered/Not Resolved]
  - Anal incontinence [Recovered/Resolved]
  - Gait disturbance [Not Recovered/Not Resolved]
  - Malaise [Unknown]
  - Stoma site discharge [Recovered/Resolved]
  - Initial insomnia [Not Recovered/Not Resolved]
  - Constipation [Unknown]
  - Mobility decreased [Not Recovered/Not Resolved]
  - Hypophagia [Recovered/Resolved]
  - Cognitive disorder [Unknown]
  - Contusion [Not Recovered/Not Resolved]
  - Dyspnoea [Unknown]
  - Stoma site erythema [Unknown]
  - On and off phenomenon [Not Recovered/Not Resolved]
  - Hallucination [Not Recovered/Not Resolved]
  - Venous stenosis [Recovered/Resolved]
  - Myocardial infarction [Recovered/Resolved]
  - Loss of personal independence in daily activities [Not Recovered/Not Resolved]
  - Orthostatic hypotension [Not Recovered/Not Resolved]
  - Dizziness [Unknown]
  - Device issue [Unknown]
  - Stent placement [Unknown]
  - Memory impairment [Not Recovered/Not Resolved]
  - Dependent personality disorder [Not Recovered/Not Resolved]
  - Ageusia [Not Recovered/Not Resolved]
  - Fatigue [Unknown]
  - Unevaluable event [Unknown]
  - Vascular graft [Recovering/Resolving]
  - Nocturia [Not Recovered/Not Resolved]
  - Hypoaesthesia [Unknown]
  - Muscle rigidity [Not Recovered/Not Resolved]

NARRATIVE: CASE EVENT DATE: 2019
